FAERS Safety Report 16528425 (Version 1)
Quarter: 2019Q3

REPORT INFORMATION
  Report Type: Spontaneous
  Country: TR (occurrence: TR)
  Receive Date: 20190703
  Receipt Date: 20190703
  Transmission Date: 20191004
  Serious: Yes (Life-Threatening)
  Sender: FDA-Public Use
  Company Number: TR-AMREGENT-20191396

PATIENT
  Age: 25 Year
  Sex: Female

DRUGS (1)
  1. VENOFER [Suspect]
     Active Substance: IRON SUCROSE
     Dosage: UNKNOWN
     Route: 042
     Dates: start: 20190516, end: 20190516

REACTIONS (3)
  - Dyspnoea [Unknown]
  - Maternal exposure during pregnancy [Unknown]
  - Burning sensation [Unknown]

NARRATIVE: CASE EVENT DATE: 20190516
